FAERS Safety Report 8306091-X (Version None)
Quarter: 2012Q2

REPORT INFORMATION
  Report Type: 
  Country: None (occurrence: None)
  Receive Date: 20120423
  Receipt Date: 20120416
  Transmission Date: 20120825
  Serious: Yes (Other)
  Sender: FDA-Public Use
  Company Number: US-FRI-1000027468

PATIENT
  Sex: Male

DRUGS (11)
  1. VIIBRYD [Suspect]
     Indication: DEPRESSION
     Dosage: 10 MG
     Route: 048
     Dates: start: 20111205, end: 20111211
  2. VIIBRYD [Suspect]
     Dosage: 20 MG
     Route: 048
     Dates: start: 20111212, end: 20111218
  3. CLONAZEPAM [Concomitant]
     Indication: ANXIETY
     Dosage: UP TO BID
     Dates: start: 20111212
  4. GINKGO BILOBA [Concomitant]
  5. ZINC WITH VITAMIN D3 [Concomitant]
  6. MEN'S VITAMINS [Concomitant]
  7. CALCIUM [Concomitant]
  8. LIPOFLAVONOID [Concomitant]
  9. MAGNESIUM [Concomitant]
  10. VIIBRYD [Suspect]
     Dosage: 40 MG
     Route: 048
     Dates: start: 20111219, end: 20111230
  11. SUPER B COMPLEX WITH VITAMIN C AND FOLIC ACID [Concomitant]

REACTIONS (8)
  - VISUAL IMPAIRMENT [None]
  - HEADACHE [None]
  - PARAESTHESIA [None]
  - HALLUCINATION, AUDITORY [None]
  - ABNORMAL DREAMS [None]
  - TREMOR [None]
  - THINKING ABNORMAL [None]
  - TINNITUS [None]
